FAERS Safety Report 6652131-3 (Version None)
Quarter: 2010Q1

REPORT INFORMATION
  Report Type: 
  Country: None (occurrence: None)
  Receive Date: 20100323
  Receipt Date: 20100315
  Transmission Date: 20100710
  Serious: Yes (Death, Hospitalization)
  Sender: FDA-Public Use
  Company Number: 2010US000860

PATIENT
  Age: 63 Year
  Sex: Female

DRUGS (15)
  1. PROGRAF [Suspect]
     Indication: RENAL TRANSPLANT
     Dosage: 1 MG, UID/QD, ORAL
     Route: 048
     Dates: start: 20091228
  2. ASPIRIN [Concomitant]
  3. CARAFATE [Concomitant]
  4. COLACE (DOCUSATE SODIUM) [Concomitant]
  5. HUMALOG [Concomitant]
  6. LANTUS [Concomitant]
  7. LASIX [Concomitant]
  8. MYCELEX [Concomitant]
  9. MYFORTIC  (MYCOPHENOLIC  ACIS) [Concomitant]
  10. OMEPRAZOLE [Concomitant]
  11. PREDNISONE TAB [Concomitant]
  12. SEPTRA [Concomitant]
  13. SYNTHYROID  (LEVOTHYROXIDE) [Concomitant]
  14. VALCYTE  (VALCYTE  (VALGANCICLOVIR HYSROCHLORIDE) [Concomitant]
  15. VICODIN [Concomitant]

REACTIONS (5)
  - ANKLE FRACTURE [None]
  - FALL [None]
  - INCISION SITE INFECTION [None]
  - MENTAL STATUS CHANGES [None]
  - SEPSIS [None]
